FAERS Safety Report 5933446-0 (Version None)
Quarter: 2008Q4

REPORT INFORMATION
  Report Type: 
  Country: None (occurrence: None)
  Receive Date: 20081022
  Receipt Date: 20020901
  Transmission Date: 20090506
  Serious: Yes (Death)
  Sender: FDA-Public Use
  Company Number: US-WYE-H06416608

PATIENT
  Age: 18 Year
  Sex: Male

DRUGS (3)
  1. ROBITUSSIN COUGH LONG ACTING (DEXTROMETHORPHAN HYDROBROMIDE, SYRUP) [Suspect]
     Indication: DRUG ABUSE
     Dosage: ORAL
     Route: 048
  2. FENTANYL-100 [Suspect]
     Indication: DRUG ABUSE
  3. MARIJUANA (CANNABIS, ) [Suspect]
     Indication: DRUG ABUSE

REACTIONS (5)
  - DRUG ABUSE [None]
  - DRUG DEPENDENCE [None]
  - HALLUCINATION [None]
  - MULTIPLE DRUG OVERDOSE [None]
  - RESPIRATORY ARREST [None]
